FAERS Safety Report 10271721 (Version 1)
Quarter: 2014Q3

REPORT INFORMATION
  Report Type: Spontaneous
  Country: US (occurrence: US)
  Receive Date: 20140701
  Receipt Date: 20140701
  Transmission Date: 20150326
  Serious: No
  Sender: FDA-Public Use
  Company Number: US-SA-2014SA035351

PATIENT
  Age: 9 Year
  Sex: Female
  Weight: 29.8 kg

DRUGS (4)
  1. VITAMIN B12 [Concomitant]
     Active Substance: CYANOCOBALAMIN
  2. CEREZYME [Suspect]
     Active Substance: IMIGLUCERASE
     Indication: GAUCHER^S DISEASE
     Dosage: DOSE:53.69 UNIT(S)/KILOGRAM BODYWEIGHT
     Route: 042
     Dates: start: 20090825
  3. MULTIVITAMINS [Concomitant]
     Active Substance: VITAMINS
     Dosage: FLINTSTONES GUMMY CHEWABLE MULTIVITAMIN
  4. CHOLECALCIFEROL [Concomitant]
     Active Substance: CHOLECALCIFEROL
     Dosage: DOSE:400 UNIT(S)

REACTIONS (2)
  - Dyspnoea [Recovered/Resolved]
  - Cough [Recovered/Resolved]

NARRATIVE: CASE EVENT DATE: 20140314
